FAERS Safety Report 18858071 (Version 9)
Quarter: 2021Q2

REPORT INFORMATION
  Report Type: Spontaneous
  Country: US (occurrence: US)
  Receive Date: 20210208
  Receipt Date: 20210510
  Transmission Date: 20210717
  Serious: No
  Sender: FDA-Public Use
  Company Number: US-BIOVITRUM-2021US1157

PATIENT
  Age: 11 Month
  Sex: Female
  Weight: 8 kg

DRUGS (14)
  1. POLY?VI?SOL [Concomitant]
     Active Substance: VITAMINS
  2. SYNAGIS [Suspect]
     Active Substance: PALIVIZUMAB
     Indication: CLEFT PALATE
     Dosage: SYNAGIS 100MG/1ML AND 50MG/0.5ML
     Route: 030
     Dates: start: 20210128
  3. OMEPRAZOLE. [Concomitant]
     Active Substance: OMEPRAZOLE
     Dates: start: 20210210
  4. SYNAGIS [Suspect]
     Active Substance: PALIVIZUMAB
     Indication: ANTIVIRAL PROPHYLAXIS
  5. SYNAGIS [Suspect]
     Active Substance: PALIVIZUMAB
     Indication: PREMATURE BABY
  6. ZYRTEC [Concomitant]
     Active Substance: CETIRIZINE HYDROCHLORIDE
  7. TRIAMCINOLONE ACETONID [Concomitant]
     Route: 061
     Dates: start: 20210210, end: 20210224
  8. PREDNISOLONE. [Concomitant]
     Active Substance: PREDNISOLONE
     Dosage: 15 MG/5 ML
     Route: 048
  9. ALBUTEROL SULFATE. [Concomitant]
     Active Substance: ALBUTEROL SULFATE
  10. BUDESONIDE. [Concomitant]
     Active Substance: BUDESONIDE
  11. EUCRISA [Concomitant]
     Active Substance: CRISABOROLE
     Route: 061
     Dates: start: 20210210
  12. SYNAGIS [Suspect]
     Active Substance: PALIVIZUMAB
     Indication: BRONCHOPULMONARY DYSPLASIA
  13. SYNAGIS [Suspect]
     Active Substance: PALIVIZUMAB
     Indication: LARYNGOMALACIA
  14. LANSOPRAZOLE. [Concomitant]
     Active Substance: LANSOPRAZOLE

REACTIONS (15)
  - Skin haemorrhage [Unknown]
  - Dyspnoea [Recovered/Resolved]
  - Upper respiratory tract inflammation [Unknown]
  - Nasal congestion [Unknown]
  - Adverse drug reaction [Unknown]
  - Condition aggravated [Unknown]
  - Insomnia [Unknown]
  - Rash [Unknown]
  - Irritability [Unknown]
  - Eczema [Unknown]
  - Pharyngeal swelling [Unknown]
  - Erythema [Unknown]
  - Urticaria [Unknown]
  - Product dose omission issue [Unknown]
  - Feeling abnormal [Unknown]

NARRATIVE: CASE EVENT DATE: 20210129
